FAERS Safety Report 6374754-1 (Version None)
Quarter: 2009Q3

REPORT INFORMATION
  Report Type: 
  Country: None (occurrence: None)
  Receive Date: 20090924
  Receipt Date: 20090915
  Transmission Date: 20100115
  Serious: Yes (Hospitalization, Other)
  Sender: FDA-Public Use
  Company Number: PHEH2009US10905

PATIENT
  Sex: Male

DRUGS (1)
  1. EXJADE [Suspect]
     Dosage: 1750 (UNIT UNSPECIFIED), DAILY
     Route: 048
     Dates: start: 20090610, end: 20090908

REACTIONS (2)
  - FALL [None]
  - SPLENIC INJURY [None]
